FAERS Safety Report 15720498 (Version 1)
Quarter: 2018Q4

REPORT INFORMATION
  Report Type: Spontaneous
  Country: CA (occurrence: CA)
  Receive Date: 20181213
  Receipt Date: 20181213
  Transmission Date: 20190205
  Serious: Yes (Other)
  Sender: FDA-Public Use
  Company Number: CA-ELI_LILLY_AND_COMPANY-CA201812001149

PATIENT
  Age: 32 Year
  Sex: Male

DRUGS (19)
  1. RISPERDAL [Suspect]
     Active Substance: RISPERIDONE
     Indication: SCHIZOPHRENIA
     Dosage: 1 DF, UNKNOWN
     Route: 065
  2. ABILIFY MAINTENA [Suspect]
     Active Substance: ARIPIPRAZOLE
     Indication: SCHIZOPHRENIA
     Dosage: UNK, UNKNOWN
     Route: 065
  3. INVEGA SUSTENNA [Suspect]
     Active Substance: PALIPERIDONE PALMITATE
     Indication: SCHIZOPHRENIA
     Dosage: 1 DF, UNKNOWN
     Route: 065
  4. LATUDA [Suspect]
     Active Substance: LURASIDONE HYDROCHLORIDE
     Indication: SCHIZOPHRENIA
     Dosage: 1 DF, UNKNOWN
     Route: 065
  5. QUETIAPINE FUMARATE. [Suspect]
     Active Substance: QUETIAPINE FUMARATE
     Indication: SCHIZOPHRENIA
     Dosage: UNK, UNKNOWN
     Route: 065
  6. SAPHRIS [Suspect]
     Active Substance: ASENAPINE MALEATE
     Indication: SCHIZOPHRENIA
     Dosage: UNK, UNKNOWN
     Route: 065
  7. FLUPENTIXOL [Suspect]
     Active Substance: FLUPENTIXOL
     Indication: SCHIZOPHRENIA
     Dosage: UNK, UNKNOWN
     Route: 065
  8. PALIPERIDONE PALMITATE [Suspect]
     Active Substance: PALIPERIDONE PALMITATE
     Dosage: UNK, UNKNOWN
     Route: 065
  9. RISPERDAL CONSTA [Suspect]
     Active Substance: RISPERIDONE
     Indication: SCHIZOPHRENIA
     Dosage: UNK, UNKNOWN
     Route: 065
  10. ZIPRASIDONE HYDROCHLORIDE. [Suspect]
     Active Substance: ZIPRASIDONE HYDROCHLORIDE
     Indication: SCHIZOPHRENIA
     Dosage: UNK, UNKNOWN
     Route: 065
  11. ZYPREXA [Suspect]
     Active Substance: OLANZAPINE
     Indication: SCHIZOPHRENIA
     Dosage: UNK, UNKNOWN
     Route: 065
  12. PALIPERIDONE PALMITATE [Suspect]
     Active Substance: PALIPERIDONE PALMITATE
     Indication: SCHIZOPHRENIA
     Dosage: UNK, UNKNOWN
     Route: 065
  13. ZUCLOPENTHIXOL DECANOATE [Suspect]
     Active Substance: ZUCLOPENTHIXOL DECANOATE
     Indication: SCHIZOPHRENIA
     Dosage: UNK, UNKNOWN
     Route: 065
  14. CLOZAPINE. [Suspect]
     Active Substance: CLOZAPINE
     Indication: SCHIZOPHRENIA
     Dosage: UNK, UNKNOWN
     Route: 065
  15. ARIPIPRAZOLE. [Suspect]
     Active Substance: ARIPIPRAZOLE
     Indication: SCHIZOPHRENIA
     Dosage: 1 DF, UNKNOWN
     Route: 065
  16. QUETIAPINE. [Suspect]
     Active Substance: QUETIAPINE
     Indication: SCHIZOPHRENIA
     Dosage: UNK, UNKNOWN
     Route: 065
  17. ZUCLOPENTHIXOL ACETATE [Suspect]
     Active Substance: ZUCLOPENTHIXOL ACETATE
     Indication: SCHIZOPHRENIA
     Dosage: UNK, UNKNOWN
     Route: 065
  18. ZUCLOPENTHIXOL HYDROCHLORIDE [Suspect]
     Active Substance: ZUCLOPENTHIXOL HYDROCHLORIDE
     Indication: SCHIZOPHRENIA
     Dosage: UNK, UNKNOWN
     Route: 065
  19. ZIPRASIDONE HYDROCHLORIDE. [Suspect]
     Active Substance: ZIPRASIDONE HYDROCHLORIDE
     Dosage: UNK, UNKNOWN
     Route: 065

REACTIONS (13)
  - Disturbance in social behaviour [Unknown]
  - Metabolic disorder [Unknown]
  - Personality change [Unknown]
  - Dyskinesia [Unknown]
  - Sedation [Unknown]
  - Blood prolactin abnormal [Unknown]
  - Blood glucose increased [Unknown]
  - Suicide attempt [Unknown]
  - Anosognosia [Unknown]
  - Dystonia [Unknown]
  - Condition aggravated [Unknown]
  - Sexual dysfunction [Unknown]
  - Drug ineffective [Unknown]
